FAERS Safety Report 26036997 (Version 1)
Quarter: 2025Q4

REPORT INFORMATION
  Report Type: Spontaneous
  Country: IL (occurrence: IL)
  Receive Date: 20251112
  Receipt Date: 20251112
  Transmission Date: 20260118
  Serious: Yes (Hospitalization)
  Sender: BIOGEN
  Company Number: IL-BIOGEN-2090265

PATIENT
  Age: 53 Year
  Sex: Female

DRUGS (1)
  1. TYSABRI [Suspect]
     Active Substance: NATALIZUMAB
     Indication: Multiple sclerosis
     Dosage: LAST INFUSION OF TYSABRI ON 09-SEP-2025
     Dates: start: 2016, end: 20250909

REACTIONS (3)
  - Central nervous system lesion [Not Recovered/Not Resolved]
  - Malaise [Not Recovered/Not Resolved]
  - Neurological decompensation [Not Recovered/Not Resolved]

NARRATIVE: CASE EVENT DATE: 20250901
